FAERS Safety Report 16617702 (Version 1)
Quarter: 2019Q3

REPORT INFORMATION
  Report Type: Spontaneous
  Country: US (occurrence: US)
  Receive Date: 20190610
  Receipt Date: 20190610
  Transmission Date: 20191004
  Serious: No
  Sender: FDA-Public Use
  Company Number: None

PATIENT
  Age: 61 Year
  Sex: Male
  Weight: 133.81 kg

DRUGS (12)
  1. HYDROCODONE [Concomitant]
     Active Substance: HYDROCODONE
  2. IBUPROFEN. [Concomitant]
     Active Substance: IBUPROFEN
  3. VITAMIN E [Concomitant]
     Active Substance: .ALPHA.-TOCOPHEROL
  4. MAGNESIUM [Concomitant]
     Active Substance: MAGNESIUM
  5. C-PAP MACHINE [Concomitant]
     Active Substance: DEVICE
  6. VITAMIN D3 [Concomitant]
     Active Substance: CHOLECALCIFEROL
  7. RYTARY [Concomitant]
     Active Substance: CARBIDOPA\LEVODOPA
  8. RYTARY [Suspect]
     Active Substance: CARBIDOPA\LEVODOPA
     Indication: PARKINSON^S DISEASE
     Dosage: ?          OTHER STRENGTH:61.25 - 245 MG;QUANTITY:2 DF DOSAGE FORM;?
     Route: 048
     Dates: start: 20180401
  9. VITAMIN B12 [Concomitant]
     Active Substance: CYANOCOBALAMIN
  10. ACETAMIN 5-325MG [Concomitant]
  11. SETRALINE HCB [Concomitant]
  12. PRAMIPEXOLE. [Concomitant]
     Active Substance: PRAMIPEXOLE

REACTIONS (2)
  - General symptom [None]
  - Malaise [None]

NARRATIVE: CASE EVENT DATE: 20190514
